FAERS Safety Report 5853753-X (Version None)
Quarter: 2008Q3

REPORT INFORMATION
  Report Type: 
  Country: None (occurrence: None)
  Receive Date: 20080822
  Receipt Date: 20080815
  Transmission Date: 20090109
  Serious: Yes (Life-Threatening, Hospitalization)
  Sender: FDA-Public Use
  Company Number: DE-AMGEN-US275768

PATIENT
  Sex: Male
  Weight: 22 kg

DRUGS (5)
  1. ENBREL [Suspect]
     Indication: JUVENILE ARTHRITIS
     Route: 058
     Dates: start: 20070601
  2. PREDNISOLONE [Concomitant]
     Indication: JUVENILE ARTHRITIS
     Route: 048
     Dates: start: 20061001, end: 20071101
  3. COLCHICINE [Concomitant]
     Indication: JUVENILE ARTHRITIS
     Route: 048
     Dates: start: 20050401, end: 20061101
  4. METHOTREXATE SODIUM [Concomitant]
     Indication: JUVENILE ARTHRITIS
     Route: 048
     Dates: start: 20051101, end: 20061201
  5. UNSPECIFIED STEROIDS [Concomitant]
     Route: 065

REACTIONS (1)
  - ACUTE LYMPHOCYTIC LEUKAEMIA [None]
